FAERS Safety Report 14109870 (Version 1)
Quarter: 2017Q4

REPORT INFORMATION
  Report Type: Spontaneous
  Country: US (occurrence: US)
  Receive Date: 20171020
  Receipt Date: 20171020
  Transmission Date: 20180321
  Serious: No
  Sender: FDA-Public Use
  Company Number: US-TEVA-809905ACC

PATIENT
  Sex: Female

DRUGS (2)
  1. MICONAZOLE. [Suspect]
     Active Substance: MICONAZOLE
     Indication: VULVOVAGINAL PRURITUS
  2. FLUCONAZOLE 100MG [Concomitant]
     Active Substance: FLUCONAZOLE
     Indication: EAR INFECTION

REACTIONS (2)
  - Expired product administered [Unknown]
  - Drug ineffective [Unknown]
